FAERS Safety Report 8420488-9 (Version None)
Quarter: 2012Q2

REPORT INFORMATION
  Report Type: 
  Country: None (occurrence: None)
  Receive Date: 20120608
  Receipt Date: 20120605
  Transmission Date: 20120825
  Serious: Yes (Other)
  Sender: FDA-Public Use
  Company Number: US-AMGEN-USASP2012035310

PATIENT
  Sex: Female

DRUGS (3)
  1. PROLIA [Suspect]
     Indication: PRODUCT USED FOR UNKNOWN INDICATION
     Dosage: 60 MG, Q6MO
     Dates: start: 20110601
  2. CALCIUM WITH VITAMIN D             /00944201/ [Concomitant]
  3. GASTROINTESTINAL MEDICINE [Concomitant]

REACTIONS (12)
  - FOOT FRACTURE [None]
  - MALAISE [None]
  - ACTIVITIES OF DAILY LIVING IMPAIRED [None]
  - SCIATICA [None]
  - RASH GENERALISED [None]
  - DRUG HYPERSENSITIVITY [None]
  - MYALGIA [None]
  - IMPAIRED HEALING [None]
  - WALKING AID USER [None]
  - BONE DENSITY DECREASED [None]
  - ARTHRALGIA [None]
  - WHEELCHAIR USER [None]
